FAERS Safety Report 24560543 (Version 1)
Quarter: 2024Q4

REPORT INFORMATION
  Report Type: Spontaneous
  Country: GB (occurrence: GB)
  Receive Date: 20241029
  Receipt Date: 20241029
  Transmission Date: 20250115
  Serious: Yes (Life-Threatening, Other)
  Sender: TEVA
  Company Number: None

PATIENT
  Age: 47 Year
  Sex: Male
  Weight: 87 kg

DRUGS (1)
  1. PREGABALIN [Suspect]
     Active Substance: PREGABALIN
     Indication: Anxiety
     Dosage: TIME INTERVAL: 0.33333333 DAYS
     Route: 065
     Dates: start: 20241012

REACTIONS (5)
  - Abnormal dreams [Recovering/Resolving]
  - Chest discomfort [Not Recovered/Not Resolved]
  - Rhinitis [Not Recovered/Not Resolved]
  - Delirium [Recovering/Resolving]
  - Breath holding [Not Recovered/Not Resolved]

NARRATIVE: CASE EVENT DATE: 20241019
